FAERS Safety Report 24334729 (Version 1)
Quarter: 2024Q3

REPORT INFORMATION
  Report Type: Spontaneous
  Country: US (occurrence: US)
  Receive Date: 20240918
  Receipt Date: 20240918
  Transmission Date: 20241016
  Serious: No
  Sender: NOVARTIS
  Company Number: US-002147023-NVSC2024US186377

PATIENT
  Age: 61 Year
  Sex: Female

DRUGS (1)
  1. LEQVIO [Suspect]
     Active Substance: INCLISIRAN SODIUM
     Indication: Low density lipoprotein
     Dosage: UNK (284MG/1.5ML) (FIRST DOSE, 3 MONTH DOSE AND THEN EVERY 6 MONTHS AFTER) (VIAL)
     Route: 058
     Dates: start: 202409

REACTIONS (1)
  - Protein total increased [Unknown]
